FAERS Safety Report 5164671-7 (Version None)
Quarter: 2006Q4

REPORT INFORMATION
  Report Type: 
  Country: None (occurrence: None)
  Receive Date: 20061127
  Receipt Date: 20061115
  Transmission Date: 20070319
  Serious: Yes (Hospitalization, Other)
  Sender: FDA-Public Use
  Company Number: 2006SP004834

PATIENT
  Age: 65 Year
  Sex: Male

DRUGS (8)
  1. PEG-INTRON [Suspect]
     Indication: HEPATITIS C
     Dosage: SC
     Route: 058
     Dates: start: 20060126, end: 20060828
  2. RIBASPHERE [Suspect]
     Indication: HEPATITIS C
     Dosage: 1400 MG; QD; PO
     Route: 048
     Dates: start: 20060126, end: 20060828
  3. FLUOXETINE HCL [Concomitant]
  4. GABAPENTIN [Concomitant]
  5. GLIPIZIDE [Concomitant]
  6. LISINOPRIL [Concomitant]
  7. TRAZODONE HCL [Concomitant]
  8. PROTONIX [Concomitant]

REACTIONS (18)
  - ALPHA HAEMOLYTIC STREPTOCOCCAL INFECTION [None]
  - ANAEMIA [None]
  - AORTIC VALVE SCLEROSIS [None]
  - CHRONIC OBSTRUCTIVE PULMONARY DISEASE [None]
  - DEPRESSION [None]
  - DYSPNOEA EXERTIONAL [None]
  - FATIGUE [None]
  - FUNGAL INFECTION [None]
  - HAEMOSIDEROSIS [None]
  - HEART VALVE CALCIFICATION [None]
  - HEPATIC SIDEROSIS [None]
  - INTERSTITIAL LUNG DISEASE [None]
  - IRON OVERLOAD [None]
  - LEGIONELLA INFECTION [None]
  - LUNG INFECTION [None]
  - LUNG NEOPLASM [None]
  - PULMONARY FIBROSIS [None]
  - VENTRICULAR HYPERTROPHY [None]
